FAERS Safety Report 18393143 (Version 1)
Quarter: 2020Q4

REPORT INFORMATION
  Report Type: Spontaneous
  Country: CH (occurrence: CH)
  Receive Date: 20201016
  Receipt Date: 20201016
  Transmission Date: 20210114
  Serious: Yes (Other)
  Sender: FDA-Public Use
  Company Number: NVSC2020CH276914

PATIENT
  Age: 65 Year
  Sex: Female

DRUGS (4)
  1. CO-TELMISARTAN SANDOZ [Suspect]
     Active Substance: HYDROCHLOROTHIAZIDE\TELMISARTAN
     Indication: HYPERTENSION
     Dosage: UNK UNK, QD
     Route: 048
  2. ROSUVASTATIN SANDOZ [Suspect]
     Active Substance: ROSUVASTATIN CALCIUM
     Indication: DYSLIPIDAEMIA
     Dosage: 5 MG, QD
     Route: 048
  3. COSENTYX [Suspect]
     Active Substance: SECUKINUMAB
     Indication: PUSTULAR PSORIASIS
     Dosage: 300 MG, QW (ONCE A WEEK FOR THE FIRST MONTH AND THEN ONCE A MONTH)
     Route: 058
     Dates: start: 20200818, end: 20200924
  4. OLBETAM [Suspect]
     Active Substance: ACIPIMOX
     Indication: DYSLIPIDAEMIA
     Dosage: 250 MG, QD
     Route: 048

REACTIONS (1)
  - Hepatic enzyme increased [Recovering/Resolving]

NARRATIVE: CASE EVENT DATE: 20200924
